FAERS Safety Report 21058849 (Version 1)
Quarter: 2022Q3

REPORT INFORMATION
  Report Type: Spontaneous
  Country: CA (occurrence: CA)
  Receive Date: 20220708
  Receipt Date: 20220708
  Transmission Date: 20221027
  Serious: No
  Sender: FDA-Public Use
  Company Number: CA-JAZZ-2022-CA-003487

PATIENT

DRUGS (1)
  1. ZEPZELCA [Suspect]
     Active Substance: LURBINECTEDIN
     Indication: Epithelioid mesothelioma
     Dosage: 3.2 MILLIGRAM/SQ. METER Q3W, INFUSION
     Route: 042
     Dates: start: 20220201

REACTIONS (2)
  - Nausea [Recovering/Resolving]
  - Off label use [Unknown]
